FAERS Safety Report 6578292-2 (Version None)
Quarter: 2010Q1

REPORT INFORMATION
  Report Type: 
  Country: None (occurrence: None)
  Receive Date: 20100211
  Receipt Date: 20100205
  Transmission Date: 20100710
  Serious: Yes (Hospitalization)
  Sender: FDA-Public Use
  Company Number: B0631511A

PATIENT
  Sex: Female

DRUGS (15)
  1. CLAMOXYL [Suspect]
     Indication: DRUG USE FOR UNKNOWN INDICATION
     Dosage: 500MG TWICE PER DAY
     Route: 048
     Dates: start: 20100104, end: 20100113
  2. COVERSYL [Suspect]
     Dosage: 10MG PER DAY
     Route: 048
     Dates: start: 20100104, end: 20100113
  3. DIMETANE [Suspect]
     Indication: ANTITUSSIVE THERAPY
     Route: 048
     Dates: start: 20100104, end: 20100113
  4. BISOPROLOL [Suspect]
     Dosage: 10MG PER DAY
     Route: 048
     Dates: start: 20091221, end: 20100113
  5. AERIUS [Suspect]
     Indication: PRURITUS
     Dosage: 5MG PER DAY
     Route: 048
     Dates: start: 20091211, end: 20100113
  6. DITROPAN [Suspect]
     Dosage: 5MG TWICE PER DAY
     Route: 048
     Dates: start: 20091211, end: 20100113
  7. PROPOFAN [Suspect]
     Route: 048
     Dates: start: 20091211, end: 20100113
  8. LEXOMIL [Suspect]
     Indication: ANXIETY
     Route: 048
     Dates: start: 20090819, end: 20100113
  9. DEBRIDAT [Concomitant]
     Route: 065
  10. VASTAREL [Concomitant]
     Route: 065
  11. COAPROVEL [Concomitant]
     Route: 065
  12. PRITORPLUS [Concomitant]
     Route: 065
  13. CRESTOR [Concomitant]
     Route: 065
  14. CERVOXAN [Concomitant]
     Route: 065
  15. MOTILIUM [Concomitant]
     Route: 065

REACTIONS (12)
  - CONDITION AGGRAVATED [None]
  - DRUG RASH WITH EOSINOPHILIA AND SYSTEMIC SYMPTOMS [None]
  - EOSINOPHILIA [None]
  - PROTEINURIA [None]
  - PRURITUS [None]
  - PYREXIA [None]
  - RASH ERYTHEMATOUS [None]
  - RASH MACULO-PAPULAR [None]
  - RENAL FAILURE [None]
  - RIGHT VENTRICULAR FAILURE [None]
  - SKIN EXFOLIATION [None]
  - SKIN LESION [None]
